FAERS Safety Report 20018368 (Version 1)
Quarter: 2021Q4

REPORT INFORMATION
  Report Type: Spontaneous
  Country: US (occurrence: US)
  Receive Date: 20211101
  Receipt Date: 20211101
  Transmission Date: 20220303
  Serious: Yes (Hospitalization, Other)
  Sender: FDA-Public Use
  Company Number: US-APOTEX-2021AP045141

PATIENT
  Age: 28 Year
  Sex: Female

DRUGS (8)
  1. GEMCITABINE [Suspect]
     Active Substance: GEMCITABINE
     Indication: Non-renal cell carcinoma of kidney
     Dosage: 1000 MILLIGRAM/SQ. METERY, DAY 1, 8 AND 15
     Route: 065
  2. CISPLATIN [Suspect]
     Active Substance: CISPLATIN
     Indication: Non-renal cell carcinoma of kidney
     Dosage: 70 MILLIGRAM/SQ. METER, DAY 1
     Route: 065
  3. DOXORUBICIN [Suspect]
     Active Substance: DOXORUBICIN
     Indication: Non-renal cell carcinoma of kidney
     Dosage: 30 MILLIGRAM/SQ. METER, DAY 1
     Route: 065
  4. BORTEZOMIB [Suspect]
     Active Substance: BORTEZOMIB
     Indication: Non-renal cell carcinoma of kidney
     Dosage: 1.3 MILLIGRAM/SQ. METER, DAY 1,4 AND 8
     Route: 065
  5. CARBOPLATIN [Suspect]
     Active Substance: CARBOPLATIN
     Indication: Non-renal cell carcinoma of kidney
     Dosage: 400 MILLIGRAM/SQ. METER, DAY 1
     Route: 065
  6. PACLITAXEL [Suspect]
     Active Substance: PACLITAXEL
     Indication: Non-renal cell carcinoma of kidney
     Dosage: 80 MILLIGRAM/SQ. METER, DAY 1, 8 AND 15
     Route: 065
  7. EVEROLIMUS [Suspect]
     Active Substance: EVEROLIMUS
     Indication: Non-renal cell carcinoma of kidney
     Dosage: 10 MILLIGRAM, QD
     Route: 065
  8. NIVOLUMAB [Suspect]
     Active Substance: NIVOLUMAB
     Indication: Non-renal cell carcinoma of kidney
     Dosage: 240 MILLIGRAM, EVERY 2 WEEK PER 2 CYCLES
     Route: 065

REACTIONS (3)
  - Pseudomonas infection [Recovering/Resolving]
  - Cardiac failure [Unknown]
  - Off label use [Unknown]
